FAERS Safety Report 21467595 (Version 2)
Quarter: 2022Q4

REPORT INFORMATION
  Report Type: Report from Study
  Country: GB (occurrence: GB)
  Receive Date: 20221017
  Receipt Date: 20221122
  Transmission Date: 20230113
  Serious: Yes (Other)
  Sender: FDA-Public Use
  Company Number: GB-JNJFOC-20220604637

PATIENT
  Age: 88 Year
  Sex: Male

DRUGS (5)
  1. ERLEADA [Suspect]
     Active Substance: APALUTAMIDE
     Indication: Prostate cancer
     Route: 048
     Dates: start: 20220414
  2. ERLEADA [Suspect]
     Active Substance: APALUTAMIDE
     Route: 048
     Dates: end: 20220705
  3. ERLEADA [Suspect]
     Active Substance: APALUTAMIDE
     Route: 048
  4. ERLEADA [Suspect]
     Active Substance: APALUTAMIDE
     Route: 048
  5. ALENDRONIC ACID [Concomitant]
     Active Substance: ALENDRONIC ACID
     Indication: Prophylaxis
     Route: 048

REACTIONS (7)
  - Metastases to lung [Recovering/Resolving]
  - Dupuytren^s contracture [Unknown]
  - Tooth extraction [Recovered/Resolved]
  - Lethargy [Recovering/Resolving]
  - Alanine aminotransferase abnormal [Recovered/Resolved]
  - Thyroid function test abnormal [Recovered/Resolved]
  - Arthralgia [Not Recovered/Not Resolved]

NARRATIVE: CASE EVENT DATE: 20220501
